FAERS Safety Report 7770029-4 (Version None)
Quarter: 2011Q3

REPORT INFORMATION
  Report Type: 
  Country: None (occurrence: None)
  Receive Date: 20110922
  Receipt Date: 20110228
  Transmission Date: 20111222
  Serious: No
  Sender: FDA-Public Use
  Company Number: US-ASTRAZENECA-2008UW00347

PATIENT
  Age: 620 Month
  Sex: Female
  Weight: 107 kg

DRUGS (22)
  1. FLAGYL [Concomitant]
     Route: 048
  2. PREDNISOLONE [Concomitant]
     Route: 048
  3. METFORMIN [Concomitant]
  4. LOTRIMIN AF [Concomitant]
  5. ZOCOR [Concomitant]
     Route: 048
  6. ZOCOR [Concomitant]
     Dates: start: 20040101
  7. HYDROXYZINE [Concomitant]
     Route: 048
  8. SEROQUEL [Suspect]
     Indication: SCHIZOPHRENIA
     Route: 048
     Dates: start: 19890911
  9. HYDROCODONE AND PARACETAMOL [Concomitant]
     Dosage: 5 MG/500 MG
     Route: 048
  10. KLOR-CON [Concomitant]
     Route: 048
  11. RANITIDINE [Concomitant]
     Route: 048
  12. RANITIDINE [Concomitant]
     Route: 048
  13. SEROQUEL [Suspect]
     Dosage: 200 MG TO 800 MG
     Route: 048
     Dates: start: 20030326
  14. GLYBURIDE [Concomitant]
  15. NEXIUM [Concomitant]
     Route: 048
  16. TYLENOL-500 [Concomitant]
     Indication: PAIN
     Route: 048
  17. DIFLUCAN [Concomitant]
     Indication: VAGINAL INFECTION
     Route: 048
  18. MICONAZOLE [Concomitant]
     Indication: VAGINAL INFECTION
     Route: 061
  19. KEFLEX [Concomitant]
     Route: 048
  20. DYAZIDE [Concomitant]
     Indication: HYPERTENSION
     Dosage: 37.5 MG (TRIAMTERINE) AND 25 MG (HYDROCHLOROTHIAZIDE)
     Route: 048
  21. MYCOLOG [Concomitant]
     Indication: VAGINAL INFECTION
  22. TRIAMTERENE AND HYDROCHLOROTHIAZIDE [Concomitant]
     Dates: start: 20040101

REACTIONS (9)
  - DIABETES MELLITUS [None]
  - BLOOD TRIGLYCERIDES INCREASED [None]
  - VISION BLURRED [None]
  - WEIGHT INCREASED [None]
  - HYPERLIPIDAEMIA [None]
  - ILL-DEFINED DISORDER [None]
  - EATING DISORDER [None]
  - HYPERTENSION [None]
  - BLOOD CHOLESTEROL INCREASED [None]
